FAERS Safety Report 5123450-7 (Version None)
Quarter: 2006Q4

REPORT INFORMATION
  Report Type: 
  Country: None (occurrence: None)
  Receive Date: 20061005
  Receipt Date: 20060922
  Transmission Date: 20070319
  Serious: Yes (Other)
  Sender: FDA-Public Use
  Company Number: 2006113065

PATIENT
  Age: 48 Year
  Sex: Male

DRUGS (6)
  1. SOLU-MEDROL [Suspect]
     Indication: RENAL TRANSPLANT
     Dosage: SEE IMAGE, INTRAVENOUS
     Route: 042
     Dates: start: 20060829, end: 20060829
  2. SOLU-MEDROL [Suspect]
     Indication: RENAL TRANSPLANT
     Dosage: SEE IMAGE, INTRAVENOUS
     Route: 042
     Dates: start: 20060830, end: 20060901
  3. SOLU-MEDROL [Suspect]
     Indication: RENAL TRANSPLANT
     Dosage: SEE IMAGE, INTRAVENOUS
     Route: 042
     Dates: start: 20060902, end: 20060902
  4. SULBACTAM (SULBACTAM) [Concomitant]
  5. GANCICLOVIR [Concomitant]
  6. MYCOPHENOLATE MOFETIL [Concomitant]

REACTIONS (4)
  - DRUG INEFFECTIVE [None]
  - KIDNEY TRANSPLANT REJECTION [None]
  - RESTLESSNESS [None]
  - WOUND HAEMORRHAGE [None]
